FAERS Safety Report 19972815 (Version 1)
Quarter: 2021Q4

REPORT INFORMATION
  Report Type: Report from Study
  Country: US (occurrence: US)
  Receive Date: 20211020
  Receipt Date: 20211020
  Transmission Date: 20220304
  Serious: Yes (Other)
  Sender: FDA-Public Use
  Company Number: US-SANOFI-00714028

PATIENT
  Age: 27 Year
  Sex: Female

DRUGS (3)
  1. DUPILUMAB [Suspect]
     Active Substance: DUPILUMAB
     Indication: Dermatitis atopic
     Dosage: 600 MG, 1X
     Route: 058
     Dates: start: 20210514, end: 20210514
  2. DUPILUMAB [Suspect]
     Active Substance: DUPILUMAB
     Dosage: 300 MG, QOW
     Route: 058
     Dates: start: 2021, end: 2021
  3. DUPILUMAB [Suspect]
     Active Substance: DUPILUMAB
     Dosage: 300 MG, QOW
     Route: 058
     Dates: start: 20210727, end: 20211014

REACTIONS (8)
  - Optic nerve injury [Unknown]
  - Nausea [Unknown]
  - Agitation [Unknown]
  - Fatigue [Unknown]
  - Wheezing [Unknown]
  - Injection site extravasation [Unknown]
  - Injection site mass [Unknown]
  - Product preparation error [Unknown]

NARRATIVE: CASE EVENT DATE: 20210101
